FAERS Safety Report 10832095 (Version 2)
Quarter: 2015Q2

REPORT INFORMATION
  Report Type: Spontaneous
  Country: CH (occurrence: CH)
  Receive Date: 20150219
  Receipt Date: 20150401
  Transmission Date: 20150821
  Serious: Yes (Death, Other)
  Sender: FDA-Public Use
  Company Number: CH-GLAXOSMITHKLINE-CH2015GSK022154

PATIENT
  Age: 2 Year
  Sex: Male

DRUGS (5)
  1. CEFTRIAXONE. [Concomitant]
     Active Substance: CEFTRIAXONE
     Indication: PRODUCT USED FOR UNKNOWN INDICATION
  2. MELPHALAN [Suspect]
     Active Substance: MELPHALAN
     Indication: NEUROBLASTOMA
     Route: 065
  3. CARBOPLATIN. [Suspect]
     Active Substance: CARBOPLATIN
     Indication: NEUROBLASTOMA
     Route: 065
  4. AMIKACIN SULPHATE [Suspect]
     Active Substance: AMIKACIN SULFATE
     Indication: PRODUCT USED FOR UNKNOWN INDICATION
     Route: 065
  5. ETOPOSIDE. [Suspect]
     Active Substance: ETOPOSIDE
     Indication: NEUROBLASTOMA

REACTIONS (14)
  - Blood pH decreased [Unknown]
  - Carbamoyl phosphate synthetase deficiency [Fatal]
  - Gastrointestinal haemorrhage [Unknown]
  - Pyrexia [Unknown]
  - Blood bicarbonate decreased [Unknown]
  - Coma [Unknown]
  - Blood creatinine increased [Unknown]
  - Bone marrow failure [Unknown]
  - Renal failure [Fatal]
  - Tubulointerstitial nephritis [Fatal]
  - Stomatitis [Unknown]
  - Hyperlactacidaemia [Unknown]
  - Hyperammonaemia [Fatal]
  - Partial seizures [Unknown]
